FAERS Safety Report 19940521 (Version 1)
Quarter: 2021Q4

REPORT INFORMATION
  Report Type: Spontaneous
  Country: US (occurrence: US)
  Receive Date: 20211011
  Receipt Date: 20211011
  Transmission Date: 20220304
  Serious: No
  Sender: FDA-Public Use
  Company Number: US-PERRIGO-20US017887

PATIENT
  Sex: Male
  Weight: 77.1 kg

DRUGS (2)
  1. IMIQUIMOD [Suspect]
     Active Substance: IMIQUIMOD
     Indication: Squamous cell carcinoma of skin
     Dosage: 1 APPLICATION, QD
     Route: 061
     Dates: start: 202011, end: 202011
  2. IMIQUIMOD [Suspect]
     Active Substance: IMIQUIMOD
     Dosage: 1 APPLICATION, QD
     Route: 061
     Dates: start: 202011, end: 202011

REACTIONS (7)
  - Application site inflammation [Recovering/Resolving]
  - Application site discharge [Recovering/Resolving]
  - Application site ulcer [Recovering/Resolving]
  - Application site hypersensitivity [Recovering/Resolving]
  - Application site induration [Recovering/Resolving]
  - Application site haemorrhage [Recovered/Resolved]
  - Off label use [Recovered/Resolved]

NARRATIVE: CASE EVENT DATE: 20200101
